FAERS Safety Report 6574718-9 (Version None)
Quarter: 2010Q1

REPORT INFORMATION
  Report Type: 
  Country: None (occurrence: None)
  Receive Date: 20100209
  Receipt Date: 20100201
  Transmission Date: 20100710
  Serious: Yes (Other)
  Sender: FDA-Public Use
  Company Number: PHHY2010CN05411

PATIENT
  Sex: Male

DRUGS (2)
  1. MIACALCIN [Suspect]
     Indication: BONE PAIN
  2. VOLTAREN [Suspect]
     Indication: BONE PAIN

REACTIONS (2)
  - CONCOMITANT DISEASE PROGRESSION [None]
  - HEPATIC NEOPLASM [None]
